FAERS Safety Report 17560942 (Version 1)
Quarter: 2020Q1

REPORT INFORMATION
  Report Type: Spontaneous
  Country: ME (occurrence: ME)
  Receive Date: 20200319
  Receipt Date: 20200319
  Transmission Date: 20200409
  Serious: Yes (Other)
  Sender: FDA-Public Use
  Company Number: NVSC2020ME072867

PATIENT
  Age: 60 Year
  Sex: Male

DRUGS (5)
  1. ZOMETA [Suspect]
     Active Substance: ZOLEDRONIC ACID
     Dosage: 4 MG, QD, EVERY 28 DAYS
     Route: 065
     Dates: end: 201805
  2. ZOMETA [Suspect]
     Active Substance: ZOLEDRONIC ACID
     Indication: PRODUCT USED FOR UNKNOWN INDICATION
     Dosage: UNK (DOSE REDUCED)
     Route: 065
     Dates: start: 201801
  3. AFINITOR [Suspect]
     Active Substance: EVEROLIMUS
     Indication: RENAL CELL CARCINOMA
     Dosage: UNK
     Route: 065
     Dates: start: 20150802, end: 201702
  4. INLYTA [Suspect]
     Active Substance: AXITINIB
     Dosage: 7 MG, BID
     Route: 065
     Dates: end: 201912
  5. INLYTA [Suspect]
     Active Substance: AXITINIB
     Indication: METASTATIC RENAL CELL CARCINOMA
     Dosage: 5 MG, BID
     Route: 065
     Dates: start: 201702

REACTIONS (11)
  - Metastases to bone [Unknown]
  - Lymphadenopathy mediastinal [Unknown]
  - Osteolysis [Unknown]
  - Retroperitoneal lymphadenopathy [Unknown]
  - Metastases to lung [Unknown]
  - Blood urea increased [Recovering/Resolving]
  - Renal cell carcinoma [Unknown]
  - Blood creatinine increased [Recovering/Resolving]
  - Hypersensitivity [Unknown]
  - Angioedema [Unknown]
  - Malignant neoplasm progression [Unknown]

NARRATIVE: CASE EVENT DATE: 201612
